FAERS Safety Report 9834971 (Version 1)
Quarter: 2014Q1

REPORT INFORMATION
  Report Type: Spontaneous
  Country: CN (occurrence: CN)
  Receive Date: 20140122
  Receipt Date: 20140122
  Transmission Date: 20141002
  Serious: Yes (Death, Hospitalization)
  Sender: FDA-Public Use
  Company Number: CN-ACTAVIS-2014-00266

PATIENT
  Age: 34 Year
  Sex: Male

DRUGS (3)
  1. PREDNISOLONE (UNKNOWN) [Suspect]
     Indication: NEPHROTIC SYNDROME
     Dosage: 60 MG, DAILY
     Route: 065
  2. TRIAMCINOLONE ACETONIDE (AMALLC) [Suspect]
     Indication: NEPHROTIC SYNDROME
     Dosage: 48 MG, DAILY
     Route: 065
  3. FUROSEMIDE [Concomitant]
     Indication: NEPHROTIC SYNDROME
     Dosage: 20 MG, DAILY
     Route: 065

REACTIONS (3)
  - Disseminated cryptococcosis [Fatal]
  - Acute respiratory failure [Fatal]
  - Cardiac failure acute [Fatal]
